FAERS Safety Report 16967127 (Version 2)
Quarter: 2019Q4

REPORT INFORMATION
  Report Type: Spontaneous
  Country: JP (occurrence: JP)
  Receive Date: 20191028
  Receipt Date: 20191121
  Transmission Date: 20200122
  Serious: No
  Sender: FDA-Public Use
  Company Number: JP-JNJFOC-20191039237

PATIENT
  Age: 95 Year
  Sex: Female

DRUGS (1)
  1. RISPERDAL [Suspect]
     Active Substance: RISPERIDONE
     Indication: RESTLESSNESS
     Dosage: RISPERIDONE: 0.5MG
     Route: 048
     Dates: start: 20191023, end: 20191023

REACTIONS (4)
  - Off label use [Unknown]
  - Sedation complication [Recovered/Resolved]
  - Feeling abnormal [Not Recovered/Not Resolved]
  - Product use in unapproved indication [Unknown]

NARRATIVE: CASE EVENT DATE: 201910
